FAERS Safety Report 23775096 (Version 2)
Quarter: 2024Q2

REPORT INFORMATION
  Report Type: Spontaneous
  Country: US (occurrence: US)
  Receive Date: 20240423
  Receipt Date: 20240426
  Transmission Date: 20240716
  Serious: No
  Sender: FDA-Public Use
  Company Number: US-SANDOZ-SDZ2024US041538

PATIENT
  Sex: Female

DRUGS (1)
  1. COMBIPATCH [Suspect]
     Active Substance: ESTRADIOL\NORETHINDRONE ACETATE
     Indication: Menopausal symptoms
     Dosage: 0.05/0.14 MG, TWICE WEEKLY (ON WEDNESDAYS AND SUNDAYS)
     Route: 062

REACTIONS (5)
  - Product storage error [Unknown]
  - Product dose omission issue [Recovered/Resolved]
  - Exposure via direct contact [Recovered/Resolved]
  - Product adhesion issue [Unknown]
  - Device issue [Unknown]
